FAERS Safety Report 8581093-7 (Version None)
Quarter: 2012Q3

REPORT INFORMATION
  Report Type: 
  Country: None (occurrence: None)
  Receive Date: 20120809
  Receipt Date: 20120804
  Transmission Date: 20120928
  Serious: No
  Sender: FDA-Public Use
  Company Number: US-BAYER-2012-080282

PATIENT

DRUGS (2)
  1. ALEVE (CAPLET) [Suspect]
     Indication: DYSMENORRHOEA
     Dosage: 5 UNK, UNK
  2. ALEVE (CAPLET) [Suspect]
     Dosage: 15 UNK, UNK
     Route: 048

REACTIONS (1)
  - NO ADVERSE EVENT [None]
